FAERS Safety Report 7269761-0 (Version None)
Quarter: 2011Q1

REPORT INFORMATION
  Report Type: 
  Country: None (occurrence: None)
  Receive Date: 20110202
  Receipt Date: 20110127
  Transmission Date: 20110831
  Serious: Yes (Hospitalization)
  Sender: FDA-Public Use
  Company Number: FR-PFIZER INC-2011019184

PATIENT
  Age: 84 Year
  Sex: Female

DRUGS (7)
  1. MODOPAR [Concomitant]
  2. ATARAX [Concomitant]
  3. CORDARONE [Suspect]
     Dosage: 100 MG, 1X/DAY
     Route: 048
     Dates: end: 20101210
  4. TIAPRIDAL [Suspect]
     Dosage: 5 DF, 2X/DAY
     Route: 048
     Dates: end: 20101202
  5. SERESTA [Suspect]
     Dosage: UNK
     Dates: end: 20101128
  6. AMLOR [Suspect]
     Dosage: 5 MG, 1X/DAY
     Route: 048
     Dates: end: 20101128
  7. PREVISCAN [Concomitant]

REACTIONS (2)
  - INTERSTITIAL LUNG DISEASE [None]
  - HYPOXIA [None]
